FAERS Safety Report 23915782 (Version 1)
Quarter: 2024Q2

REPORT INFORMATION
  Report Type: Spontaneous
  Country: ES (occurrence: ES)
  Receive Date: 20240529
  Receipt Date: 20240529
  Transmission Date: 20240715
  Serious: Yes (Other)
  Sender: FDA-Public Use
  Company Number: None

PATIENT
  Age: 83 Year
  Sex: Male
  Weight: 85 kg

DRUGS (15)
  1. ENTRESTO [Suspect]
     Active Substance: SACUBITRIL\VALSARTAN
     Indication: Essential hypertension
     Dosage: UNK (1.0 COMP C/12 H) (97 MG/103 MG, 56 TABLETS)
     Route: 048
     Dates: start: 20231109
  2. VELTASSA [Concomitant]
     Active Substance: PATIROMER
     Indication: Nephropathy
     Dosage: 8.4 G (C/24 H) (POWDER FOR ORAL SUSPENSION, 30 SACHETS)
     Route: 048
     Dates: start: 20240426
  3. FERROUS SULFATE [Concomitant]
     Active Substance: FERROUS SULFATE
     Indication: Anaemia
     Dosage: 256.3 MG (C/24 H AM) 30 TABLETS
     Route: 048
     Dates: start: 20200125
  4. ARANESP [Concomitant]
     Active Substance: DARBEPOETIN ALFA
     Indication: Anaemia
     Dosage: UNK (MCG IRREGULAR, 4 PREFILLED SYRINGES OF 0.5 ML)
     Route: 058
     Dates: start: 20240122
  5. BIMATOPROST\TIMOLOL [Concomitant]
     Active Substance: BIMATOPROST\TIMOLOL
     Indication: Glaucoma
     Dosage: UNK (1.0 GTS C/24 H) (0.3 MG/ML + 5 MG/ML EYE DROPS IN SOLUTION, 1 BOTTLE OF 3 ML)
     Route: 047
     Dates: start: 20180823
  6. ATERINA [Concomitant]
     Indication: Peripheral venous disease
     Dosage: 300.0 ULS C/12 H (SOFTGELS, 60 CAPSULES)
     Route: 048
     Dates: start: 20220809
  7. SODIUM BICARBONATE [Concomitant]
     Active Substance: SODIUM BICARBONATE
     Indication: Nephropathy
     Dosage: 500 MG, DE
     Route: 048
     Dates: start: 20230505
  8. CALCIFEDIOL [Concomitant]
     Active Substance: CALCIFEDIOL
     Indication: Nephropathy
     Dosage: 0.266 MG, QMO, 0.266 MG C/30 DIAS (0.266 MG SOFT CAPSULES, 10 CAPSULES (PVC/PVDC-ALUMINUM BLISTER)
     Route: 048
     Dates: start: 20210306
  9. PANTOPRAZOLE SODIUM [Concomitant]
     Active Substance: PANTOPRAZOLE SODIUM
     Indication: Hyperlipidaemia
     Dosage: 20 MG (DE) (TEVAGEN,56 TABLETS (BLISTER)
     Route: 048
     Dates: start: 20120403
  10. ASPIRIN [Concomitant]
     Active Substance: ASPIRIN
     Indication: Myocardial ischaemia
     Dosage: 100 MG (DE), (30 TABLETS (PVC- ALUMINIUM))
     Route: 048
     Dates: start: 20200913
  11. ALLOPURINOL [Concomitant]
     Active Substance: ALLOPURINOL
     Indication: Gout
     Dosage: 100 MG (CO), (CINFAMED 100 MG EFG TABLETS, 100 TABLETS)
     Route: 048
     Dates: start: 20181023
  12. DAPAGLIFLOZIN [Concomitant]
     Active Substance: DAPAGLIFLOZIN
     Indication: Type 2 diabetes mellitus
     Dosage: 10 MG C/24 H (28 TABLETS)
     Route: 048
     Dates: start: 20220429
  13. DOXAZOSIN MESYLATE [Concomitant]
     Active Substance: DOXAZOSIN MESYLATE
     Indication: Essential hypertension
     Dosage: 8 MG (DECE 28 TABLETS)
     Route: 048
     Dates: start: 20231110
  14. ZALDIAR [Concomitant]
     Active Substance: ACETAMINOPHEN\TRAMADOL HYDROCHLORIDE
     Indication: Spinal osteoarthritis
     Dosage: 1.0 COMP C/8 HORAS (37.5 MG/325 MG FILM-COATED TABLETS, 60 TABLETS)
     Route: 048
     Dates: start: 20221130
  15. FUROSEMIDE [Concomitant]
     Active Substance: FUROSEMIDE
     Indication: Peripheral venous disease
     Dosage: 40 MG (DECO CINFA 40 MG EFG TABLETS, 30 TABLETS)
     Route: 048
     Dates: start: 20180713

REACTIONS (1)
  - Myalgia intercostal [Not Recovered/Not Resolved]

NARRATIVE: CASE EVENT DATE: 20240515
